FAERS Safety Report 10559791 (Version 1)
Quarter: 2014Q4

REPORT INFORMATION
  Report Type: Spontaneous
  Country: US (occurrence: None)
  Receive Date: 20141031
  Receipt Date: 20141031
  Transmission Date: 20150529
  Serious: No
  Sender: FDA-Public Use
  Company Number: None

PATIENT
  Age: 64 Year
  Sex: Female

DRUGS (9)
  1. AVONEX [Concomitant]
     Active Substance: INTERFERON BETA-1A
  2. FISH OIL [Concomitant]
     Active Substance: FISH OIL
  3. VITAMIN D [Concomitant]
     Active Substance: CHOLECALCIFEROL
  4. ORENICA [Concomitant]
  5. MAGNESIUM [Concomitant]
     Active Substance: MAGNESIUM
  6. ORENCIA [Suspect]
     Active Substance: ABATACEPT
     Indication: RHEUMATOID ARTHRITIS
     Dosage: 125MG?QWEEK?SQ
     Dates: start: 20140710, end: 20141022
  7. MULTIVIRAL [Concomitant]
  8. CALTRATE [Concomitant]
     Active Substance: CALCIUM CARBONATE
  9. MELHOLREXATE [Concomitant]

REACTIONS (2)
  - Drug ineffective [None]
  - Basal cell carcinoma [None]

NARRATIVE: CASE EVENT DATE: 20141022
